FAERS Safety Report 5610815-X (Version None)
Quarter: 2008Q1

REPORT INFORMATION
  Report Type: 
  Country: None (occurrence: None)
  Receive Date: 20080201
  Receipt Date: 20080129
  Transmission Date: 20080703
  Serious: Yes (Death)
  Sender: FDA-Public Use
  Company Number: PHEH2007US16067

PATIENT
  Age: 22 Year
  Sex: Female
  Weight: 58.049 kg

DRUGS (6)
  1. EXJADE [Suspect]
     Indication: IRON OVERLOAD
     Dosage: 1500 MG, QD
     Route: 048
     Dates: start: 20060701, end: 20070901
  2. MOTRIN [Concomitant]
     Indication: PAIN
     Dosage: 600 MG, PRN
     Route: 048
  3. LORTAB [Concomitant]
     Indication: PAIN
     Dosage: 10 MG, PRN
     Route: 048
  4. BACLOFEN [Concomitant]
     Indication: MUSCLE SPASMS
     Dosage: UNK, PRN
     Route: 048
  5. FOLIC ACID [Concomitant]
     Indication: ANAEMIA
     Dosage: 1 MG, QD
     Route: 048
  6. DEPO-PROVERA [Concomitant]
     Indication: CONTRACEPTION
     Dosage: 150 MG, Q3MONTHS

REACTIONS (2)
  - DEATH [None]
  - TREATMENT NONCOMPLIANCE [None]
